FAERS Safety Report 8936330 (Version 1)
Quarter: 2012Q4

REPORT INFORMATION
  Report Type: Report from Study
  Country: JP (occurrence: JP)
  Receive Date: 20121130
  Receipt Date: 20121130
  Transmission Date: 20130627
  Serious: Yes (Hospitalization)
  Sender: FDA-Public Use
  Company Number: JP-VERTEX PHARMACEUTICAL INC.-AE-2012-001801

PATIENT
  Age: 63 Year
  Sex: Female

DRUGS (9)
  1. VX-950 (TELAPREVIR) [Suspect]
     Indication: CHRONIC HEPATITIS C
     Dosage: 2250 mg, qd
     Route: 048
     Dates: start: 20111209
  2. PEGINTRON                          /01543001/ [Suspect]
     Indication: CHRONIC HEPATITIS C
     Dosage: 80 ?g, qw
     Route: 058
     Dates: start: 20111209
  3. REBETOL [Suspect]
     Indication: CHRONIC HEPATITIS C
     Dosage: 600 mg, qd
     Route: 048
     Dates: start: 20111209, end: 20111229
  4. REBETOL [Suspect]
     Dosage: 400 mg / 2 days
     Route: 048
     Dates: start: 20111230, end: 20120105
  5. REBETOL [Suspect]
     Dosage: 600 mg / 2 days
     Route: 048
     Dates: start: 20111231, end: 20120106
  6. REBETOL [Suspect]
     Dosage: 400 mg, qd
     Route: 048
     Dates: start: 20120107
  7. PARIET [Concomitant]
     Dosage: 10 mg, qd
     Route: 048
     Dates: start: 20111212
  8. ALLEGRA [Concomitant]
     Dosage: 120 mg, qd
     Route: 048
     Dates: start: 20111216
  9. MAGLAX [Concomitant]
     Dosage: 990 mg, qd
     Route: 048

REACTIONS (4)
  - Constipation [Recovered/Resolved]
  - Nausea [Recovered/Resolved]
  - Rash [Recovered/Resolved]
  - Haemoglobin decreased [Unknown]
